FAERS Safety Report 19566306 (Version 1)
Quarter: 2021Q3

REPORT INFORMATION
  Report Type: Spontaneous
  Country: FR (occurrence: FR)
  Receive Date: 20210716
  Receipt Date: 20210716
  Transmission Date: 20211014
  Serious: Yes (Life-Threatening, Hospitalization, Other)
  Sender: FDA-Public Use
  Company Number: FR-MYLANLABS-2021M1043365

PATIENT
  Age: 62 Year
  Sex: Female
  Weight: 86.9 kg

DRUGS (1)
  1. CLOZAPINE MYLAN 25 MG, COMPRIM? S?CABLE [Suspect]
     Active Substance: CLOZAPINE
     Indication: DELIRIUM
     Dosage: 50 MILLIGRAM, QD
     Route: 048
     Dates: start: 20201204

REACTIONS (3)
  - Pulmonary embolism [Recovering/Resolving]
  - Deep vein thrombosis [Recovering/Resolving]
  - Cor pulmonale acute [Not Recovered/Not Resolved]

NARRATIVE: CASE EVENT DATE: 20210106
